FAERS Safety Report 7509133-4 (Version None)
Quarter: 2011Q2

REPORT INFORMATION
  Report Type: 
  Country: None (occurrence: None)
  Receive Date: 20110527
  Receipt Date: 20110516
  Transmission Date: 20111010
  Serious: Yes (Other)
  Sender: FDA-Public Use
  Company Number: US-JNJFOC-20110508774

PATIENT
  Sex: Female
  Weight: 38.56 kg

DRUGS (2)
  1. DURAGESIC-100 [Suspect]
     Indication: MUSCULOSKELETAL PAIN
     Route: 062
  2. DURAGESIC-100 [Suspect]
     Route: 062

REACTIONS (3)
  - DRUG INEFFECTIVE [None]
  - RENAL DISORDER [None]
  - BODY HEIGHT DECREASED [None]
